FAERS Safety Report 15021124 (Version 1)
Quarter: 2018Q2

REPORT INFORMATION
  Report Type: Spontaneous
  Country: US (occurrence: US)
  Receive Date: 20180618
  Receipt Date: 20180618
  Transmission Date: 20180711
  Serious: No
  Sender: FDA-Public Use
  Company Number: US-BAYER-2018-099877

PATIENT
  Sex: Male

DRUGS (5)
  1. ASPIRIN BUFFERED [Concomitant]
     Active Substance: ASPIRIN
     Dosage: UNK
  2. ADVIL [Concomitant]
     Active Substance: IBUPROFEN
  3. TYLENOL [Concomitant]
     Active Substance: ACETAMINOPHEN
  4. ALEVE [Suspect]
     Active Substance: NAPROXEN SODIUM
     Dosage: UNK
  5. MIRALAX [Concomitant]
     Active Substance: POLYETHYLENE GLYCOL 3350
     Indication: CONSTIPATION

REACTIONS (2)
  - Constipation [Unknown]
  - Gastrooesophageal reflux disease [Unknown]
